FAERS Safety Report 10262048 (Version 2)
Quarter: 2014Q2

REPORT INFORMATION
  Report Type: Report from Study
  Country: GB (occurrence: GB)
  Receive Date: 20140626
  Receipt Date: 20140626
  Transmission Date: 20141212
  Serious: Yes (Other)
  Sender: FDA-Public Use
  Company Number: PHHO2013GB009198

PATIENT
  Sex: 0

DRUGS (2)
  1. LDK378 [Suspect]
     Indication: LUNG NEOPLASM MALIGNANT
     Dosage: 750 MG, QD
     Dates: start: 20130507, end: 20130611
  2. LDK378 [Suspect]
     Dosage: 450 MG, QD
     Route: 048
     Dates: start: 20130910, end: 20130916

REACTIONS (1)
  - Hepatitis cholestatic [Not Recovered/Not Resolved]
